FAERS Safety Report 20056120 (Version 3)
Quarter: 2022Q2

REPORT INFORMATION
  Report Type: Report from Study
  Country: US (occurrence: US)
  Receive Date: 20211111
  Receipt Date: 20220606
  Transmission Date: 20220720
  Serious: No
  Sender: FDA-Public Use
  Company Number: US-NOVARTISTESTPH-NVSC2021US257002

PATIENT
  Sex: Female
  Weight: 65.32 kg

DRUGS (3)
  1. PIQRAY [Suspect]
     Active Substance: ALPELISIB
     Indication: Breast cancer
     Dosage: 300 MG, QD
     Route: 048
  2. PIQRAY [Suspect]
     Active Substance: ALPELISIB
     Indication: Breast cancer metastatic
     Dosage: 150 MG, QD
     Route: 065
     Dates: start: 20211103
  3. PIQRAY [Suspect]
     Active Substance: ALPELISIB
     Indication: Metastases to bone
     Dosage: 75 MG, QD (DOSE REDUCED)
     Route: 065

REACTIONS (2)
  - Dry mouth [Unknown]
  - Diarrhoea [Recovering/Resolving]
